APPROVED DRUG PRODUCT: CLARINEX D 24 HOUR
Active Ingredient: DESLORATADINE; PSEUDOEPHEDRINE SULFATE
Strength: 5MG;240MG **Federal Register determination that product was not discontinued or withdrawn for safety or effectiveness reasons**
Dosage Form/Route: TABLET, EXTENDED RELEASE;ORAL
Application: N021605 | Product #001
Applicant: ORGANON LLC A SUB OF ORGANON AND CO
Approved: Mar 3, 2005 | RLD: Yes | RS: No | Type: DISCN